FAERS Safety Report 18431479 (Version 1)
Quarter: 2020Q4

REPORT INFORMATION
  Report Type: Spontaneous
  Country: SI (occurrence: SI)
  Receive Date: 20201027
  Receipt Date: 20201027
  Transmission Date: 20210114
  Serious: Yes (Hospitalization, Other)
  Sender: FDA-Public Use
  Company Number: SI-PFIZER INC-2020412215

PATIENT
  Age: 70 Year
  Sex: Male

DRUGS (6)
  1. CANDESARTAN. [Suspect]
     Active Substance: CANDESARTAN
     Dosage: 16 MG
  2. EPLERENONE. [Suspect]
     Active Substance: EPLERENONE
     Dosage: 25 MG
  3. ENTRESTO [Suspect]
     Active Substance: SACUBITRIL\VALSARTAN
     Dosage: 200 MG, 2X/DAY (SECOND HALF OF 2019)
     Dates: start: 2019
  4. BISOPROLOL [Suspect]
     Active Substance: BISOPROLOL
     Dosage: 10 MG
     Route: 065
  5. ENTRESTO [Suspect]
     Active Substance: SACUBITRIL\VALSARTAN
     Dosage: 50 MG, 2X/DAY (24/26 MG)
  6. ENTRESTO [Suspect]
     Active Substance: SACUBITRIL\VALSARTAN
     Dosage: 100 MG, 2X/DAY (49/51 MG, 2X)

REACTIONS (6)
  - Ventricular tachycardia [Recovered/Resolved]
  - Cough [Unknown]
  - Arrhythmia [Unknown]
  - Respiratory tract infection [Unknown]
  - Cardiac failure [Unknown]
  - Supraventricular tachyarrhythmia [Unknown]
